FAERS Safety Report 4856760-9 (Version None)
Quarter: 2005Q4

REPORT INFORMATION
  Report Type: 
  Country: None (occurrence: None)
  Receive Date: 20051215
  Receipt Date: 20051215
  Transmission Date: 20060501
  Serious: No
  Sender: FDA-Public Use
  Company Number: None

PATIENT
  Age: 48 Year
  Sex: Male
  Weight: 65.318 kg

DRUGS (1)
  1. AMIFOSTINE [Suspect]
     Indication: DRY MOUTH
     Dosage: 500 MG SQ M-F PRIOR TO RT X 5 DOSES
     Route: 058
     Dates: start: 20051205, end: 20051209

REACTIONS (3)
  - RASH ERYTHEMATOUS [None]
  - RASH PAPULAR [None]
  - RASH PRURITIC [None]
